FAERS Safety Report 14224192 (Version 1)
Quarter: 2017Q4

REPORT INFORMATION
  Report Type: Spontaneous
  Country: US (occurrence: US)
  Receive Date: 20171126
  Receipt Date: 20171126
  Transmission Date: 20180321
  Serious: Yes (Other)
  Sender: FDA-Public Use
  Company Number: US-CELGENEUS-USA-20171106124

PATIENT

DRUGS (1)
  1. VIDAZA [Suspect]
     Active Substance: AZACITIDINE
     Indication: LYMPHOMA
     Route: 065

REACTIONS (3)
  - Graft versus host disease [Unknown]
  - Viral infection [Unknown]
  - Sepsis [Unknown]
